FAERS Safety Report 11459930 (Version 1)
Quarter: 2015Q3

REPORT INFORMATION
  Report Type: Spontaneous
  Country: US (occurrence: US)
  Receive Date: 20150904
  Receipt Date: 20150904
  Transmission Date: 20151125
  Serious: Yes (Other)
  Sender: FDA-Public Use
  Company Number: US-BAXALTA-2015BLT001464

PATIENT
  Sex: Female

DRUGS (1)
  1. GAMMAGARD LIQUID [Suspect]
     Active Substance: HUMAN IMMUNOGLOBULIN G
     Indication: HYPOGAMMAGLOBULINAEMIA
     Dosage: 35 G, EVERY 4 WK
     Route: 065

REACTIONS (6)
  - General physical health deterioration [Unknown]
  - Adverse event [Unknown]
  - Drug dose omission [Unknown]
  - Weight decreased [Unknown]
  - Gallbladder disorder [Unknown]
  - Pancreatitis acute [Unknown]
